FAERS Safety Report 11455956 (Version 28)
Quarter: 2016Q4

REPORT INFORMATION
  Report Type: Report from Study
  Country: CA (occurrence: CA)
  Receive Date: 20150903
  Receipt Date: 20161003
  Transmission Date: 20170206
  Serious: Yes (Hospitalization, Other)
  Sender: FDA-Public Use
  Company Number: PHHY2014CA068194

PATIENT
  Age: 61 Year
  Sex: Male

DRUGS (3)
  1. SANDOSTATIN LAR DEPOT [Suspect]
     Active Substance: OCTREOTIDE ACETATE
     Indication: PANCREATIC NEUROENDOCRINE TUMOUR
     Dosage: 30 MG, QMO (EVERY 4 WEEKS)
     Route: 030
     Dates: start: 20140501, end: 20160627
  2. METOPROLOL. [Suspect]
     Active Substance: METOPROLOL
     Indication: PRODUCT USED FOR UNKNOWN INDICATION
     Route: 048
  3. AFINITOR [Suspect]
     Active Substance: EVEROLIMUS
     Indication: PANCREATIC NEUROENDOCRINE TUMOUR
     Dosage: 10 MG, QD
     Route: 048
     Dates: start: 20150915

REACTIONS (32)
  - Sepsis [Unknown]
  - Neoplasm progression [Unknown]
  - Pyrexia [Recovered/Resolved]
  - Eye disorder [Unknown]
  - Device related infection [Unknown]
  - Skin irritation [Unknown]
  - Scab [Unknown]
  - Influenza [Recovered/Resolved]
  - Feeling abnormal [Unknown]
  - Yellow skin [Unknown]
  - Depressed mood [Unknown]
  - Chills [Unknown]
  - Blood glucose increased [Unknown]
  - Injection site pain [Unknown]
  - Pyrexia [Unknown]
  - Malignant neoplasm progression [Unknown]
  - Respiratory rate decreased [Unknown]
  - Head injury [Unknown]
  - Skin disorder [Recovering/Resolving]
  - Blood pressure diastolic increased [Unknown]
  - Decreased appetite [Unknown]
  - Needle issue [Unknown]
  - Thrombosis [Unknown]
  - Bile duct obstruction [Unknown]
  - Contusion [Unknown]
  - Skin mass [Recovering/Resolving]
  - Cough [Recovered/Resolved]
  - Blood pressure systolic increased [Unknown]
  - Insomnia [Not Recovered/Not Resolved]
  - Fall [Unknown]
  - Sinus congestion [Recovered/Resolved]
  - Body temperature decreased [Unknown]

NARRATIVE: CASE EVENT DATE: 20140530
